FAERS Safety Report 10220470 (Version 1)
Quarter: 2014Q2

REPORT INFORMATION
  Report Type: Report from Study
  Country: US (occurrence: US)
  Receive Date: 20140606
  Receipt Date: 20140606
  Transmission Date: 20141212
  Serious: Yes (Other)
  Sender: FDA-Public Use
  Company Number: US-AMGEN INC.-USACT2014041386

PATIENT
  Age: 47 Year
  Sex: Female

DRUGS (5)
  1. PEGFILGRASTIM [Suspect]
     Indication: ACUTE LYMPHOCYTIC LEUKAEMIA
     Dosage: 6 MG, CYCLIC ON DAY 4 UNTIL RECOVERY OF GRANULOCYTE COUNT
     Route: 058
     Dates: start: 20130401
  2. RITUXIMAB [Concomitant]
     Indication: ACUTE LYMPHOCYTIC LEUKAEMIA
     Dosage: 375 MG/M2, CYCLIC
     Route: 042
     Dates: start: 20130401
  3. CYTARABINE [Concomitant]
     Indication: ACUTE LYMPHOCYTIC LEUKAEMIA
     Dosage: 500 MG/M2, CYCLIC
     Route: 042
     Dates: start: 20130401
  4. INOTUZUMAB OZOGAMICIN [Concomitant]
     Indication: ACUTE LYMPHOCYTIC LEUKAEMIA
     Dosage: 1.3 MG/M2, CYCLIC
     Route: 042
     Dates: start: 20130401
  5. METHOTREXATE SODIUM [Concomitant]
     Indication: ACUTE LYMPHOCYTIC LEUKAEMIA
     Dosage: 50 MG/M2, CYCLIC
     Route: 042

REACTIONS (1)
  - Febrile neutropenia [Recovered/Resolved]
